FAERS Safety Report 4345899-2 (Version None)
Quarter: 2004Q2

REPORT INFORMATION
  Report Type: 
  Country: None (occurrence: None)
  Receive Date: 20040423
  Receipt Date: 20040423
  Transmission Date: 20050107
  Serious: No
  Sender: FDA-Public Use
  Company Number: None

PATIENT
  Sex: Male

DRUGS (1)
  1. CETUXIMAB [Suspect]
     Indication: MALIGNANT MELANOMA
     Dates: start: 20040401, end: 20040401

REACTIONS (1)
  - CHILLS [None]
